FAERS Safety Report 18219716 (Version 3)
Quarter: 2020Q4

REPORT INFORMATION
  Report Type: Report from Study
  Country: US (occurrence: US)
  Receive Date: 20200901
  Receipt Date: 20201024
  Transmission Date: 20210113
  Serious: No
  Sender: FDA-Public Use
  Company Number: NVSC2020US240366

PATIENT
  Sex: Female

DRUGS (1)
  1. COSENTYX [Suspect]
     Active Substance: SECUKINUMAB
     Indication: PSORIASIS
     Dosage: 300 MG, QW(QW FOR 5 WEEKS THEN EVERY 4 WEEKS).
     Route: 058

REACTIONS (3)
  - Chest pain [Unknown]
  - Cough [Unknown]
  - Nasal congestion [Unknown]
